FAERS Safety Report 24888736 (Version 2)
Quarter: 2025Q1

REPORT INFORMATION
  Report Type: Spontaneous
  Country: US (occurrence: US)
  Receive Date: 20250127
  Receipt Date: 20250318
  Transmission Date: 20250409
  Serious: Yes (Other)
  Sender: BRISTOL-MYERS SQUIBB COMPANY
  Company Number: US-BRISTOL-MYERS SQUIBB COMPANY-2025-009684

PATIENT
  Age: 65 Year
  Sex: Male

DRUGS (3)
  1. SPRYCEL [Suspect]
     Active Substance: DASATINIB
     Indication: Chronic myeloid leukaemia
     Route: 048
     Dates: start: 202410, end: 20250117
  2. SPRYCEL [Suspect]
     Active Substance: DASATINIB
     Indication: Neurodermatitis
  3. DUPIXENT [Concomitant]
     Active Substance: DUPILUMAB
     Indication: Dermatitis atopic
     Dosage: DUPIXENT PEN (2-PK), DUPIXENT SINGLEDOSE PRE-FILLED PEN; STRENGTH: 300MG/2ML
     Route: 058
     Dates: start: 202409

REACTIONS (1)
  - Pulmonary oedema [Unknown]
